FAERS Safety Report 23668701 (Version 2)
Quarter: 2024Q1

REPORT INFORMATION
  Report Type: Spontaneous
  Country: US (occurrence: US)
  Receive Date: 20240325
  Receipt Date: 20240327
  Transmission Date: 20240410
  Serious: Yes (Life-Threatening, Hospitalization, Other)
  Sender: FDA-Public Use
  Company Number: US-MLMSERVICE-20240314-4883658-1

PATIENT
  Age: 13 Year
  Sex: Male

DRUGS (14)
  1. METHYLPREDNISOLONE SODIUM SUCCINATE [Suspect]
     Active Substance: METHYLPREDNISOLONE SODIUM SUCCINATE
     Indication: Colitis
     Dosage: 40 MG
     Route: 042
  2. METHYLPREDNISOLONE SODIUM SUCCINATE [Suspect]
     Active Substance: METHYLPREDNISOLONE SODIUM SUCCINATE
     Dosage: 16 MG, 2X/DAY; FREQ:12 H; 16 MG TWICE DAILY
     Route: 042
  3. METHYLPREDNISOLONE SODIUM SUCCINATE [Suspect]
     Active Substance: METHYLPREDNISOLONE SODIUM SUCCINATE
     Dosage: 16 MG, 1X/DAY; DECREASED BY 50% TO 16 MG DAILY
     Route: 042
  4. PREDNISONE [Suspect]
     Active Substance: PREDNISONE
     Indication: Colitis
     Dosage: UNK
  5. PREDNISONE [Suspect]
     Active Substance: PREDNISONE
     Dosage: 40 MG, 1X/DAY
     Route: 048
  6. PREDNISONE [Suspect]
     Active Substance: PREDNISONE
     Dosage: 20 MG, 1X/DAY
     Route: 048
  7. UPADACITINIB [Suspect]
     Active Substance: UPADACITINIB
     Indication: Colitis
     Dosage: 45 MG, 1X/DAY; FOR 8 WEEKS
  8. UPADACITINIB [Suspect]
     Active Substance: UPADACITINIB
     Dosage: 30 MG, 1X/DAY
  9. UPADACITINIB [Suspect]
     Active Substance: UPADACITINIB
     Dosage: 45 MG, 1X/DAY, ESCALATION
  10. UPADACITINIB [Suspect]
     Active Substance: UPADACITINIB
     Dosage: 45 MG, 1X/DAY; RESTARTED ON UPADACITINIB
     Route: 058
  11. USTEKINUMAB [Suspect]
     Active Substance: USTEKINUMAB
     Indication: Colitis
     Dosage: 260 MG, SINGLE; IV INDUCTION
     Route: 042
  12. USTEKINUMAB [Suspect]
     Active Substance: USTEKINUMAB
     Dosage: 90 MG, CYCLIC; FREQ:8 WK;8 WEEKS LATER
     Route: 058
  13. USTEKINUMAB [Suspect]
     Active Substance: USTEKINUMAB
     Dosage: 90 MG, CYCLIC; FREQ:4 WK;DOSING FREQUENCY WAS DECREASED
     Route: 058
  14. VEDOLIZUMAB [Suspect]
     Active Substance: VEDOLIZUMAB
     Indication: Colitis
     Dosage: 300 MG, SINGLE, INDUCTION DOSE
     Route: 042

REACTIONS (3)
  - Cytomegalovirus colitis [Recovering/Resolving]
  - Hypoalbuminaemia [Recovering/Resolving]
  - Alanine aminotransferase increased [Recovered/Resolved]
